FAERS Safety Report 5338989-9 (Version None)
Quarter: 2007Q2

REPORT INFORMATION
  Report Type: 
  Country: None (occurrence: None)
  Receive Date: 20070530
  Receipt Date: 20070522
  Transmission Date: 20071010
  Serious: Yes (Other)
  Sender: FDA-Public Use
  Company Number: US-SANOFI-SYNTHELABO-A03200703264

PATIENT
  Sex: Female

DRUGS (2)
  1. KAYEXALATE [Suspect]
     Indication: ELECTROLYTE IMBALANCE
     Route: 048
  2. BLOOD PRESSURE MEDICATION (NOS) [Concomitant]
     Dosage: UNK
     Route: 065

REACTIONS (1)
  - HYPERTENSION [None]
